FAERS Safety Report 6443023-3 (Version None)
Quarter: 2009Q4

REPORT INFORMATION
  Report Type: 
  Country: None (occurrence: None)
  Receive Date: 20091117
  Receipt Date: 20091105
  Transmission Date: 20100525
  Serious: Yes (Other)
  Sender: FDA-Public Use
  Company Number: US-AMGEN-QUU373259

PATIENT
  Sex: Male

DRUGS (12)
  1. ENBREL [Suspect]
     Indication: RHEUMATOID ARTHRITIS
     Dates: start: 19990101
  2. ENBREL [Suspect]
     Indication: ANKYLOSING SPONDYLITIS
  3. ENBREL [Suspect]
     Indication: PSORIASIS
  4. ADVAIR DISKUS 100/50 [Concomitant]
  5. LOTREL [Concomitant]
  6. DIOVAN [Concomitant]
  7. HYDROCHLOROTHIAZIDE [Concomitant]
  8. PROTONIX [Concomitant]
  9. CELEBREX [Concomitant]
  10. CYMBALTA [Concomitant]
  11. CELEXA [Concomitant]
  12. METHOTREXATE [Concomitant]

REACTIONS (5)
  - CHRONIC OBSTRUCTIVE PULMONARY DISEASE [None]
  - DEPRESSION [None]
  - LIGAMENT PAIN [None]
  - RESPIRATORY TRACT INFECTION FUNGAL [None]
  - SINUSITIS [None]
